FAERS Safety Report 8685075 (Version 4)
Quarter: 2012Q4

REPORT INFORMATION
  Report Type: Spontaneous
  Country: FR (occurrence: None)
  Receive Date: 20120706
  Receipt Date: 20120906
  Transmission Date: 20130627
  Serious: Yes (Hospitalization)
  Sender: FDA-Public Use
  Company Number: 2012-002368

PATIENT
  Age: 60 Year
  Sex: Female

DRUGS (8)
  1. ACTONEL [Suspect]
     Route: 048
     Dates: end: 20120220
  2. ATRIPLA [Suspect]
     Indication: HIV INFECTION
     Dosage: 1 DF DAILY, ORAL
     Route: 048
     Dates: end: 20120218
  3. TARKA [Suspect]
     Indication: HYPERTENSION ARTERIAL
     Route: 048
     Dates: end: 20120218
  4. FLUDEX [Suspect]
     Indication: HYPERTENSION ARTERIAL
     Route: 048
     Dates: end: 20120218
  5. MEDIATENSYL [Suspect]
     Indication: HYPERTENSION ARTERIAL
     Dates: end: 20120220
  6. PLAVIX [Suspect]
     Route: 048
     Dates: end: 20120220
  7. EZETIMIBE AND SIMVASTATIN [Concomitant]
  8. IMOVANE [Concomitant]

REACTIONS (9)
  - Renal tubular disorder [None]
  - Tubulointerstitial nephritis [None]
  - Renal tubular necrosis [None]
  - Pain [None]
  - Renal failure acute [None]
  - Back pain [None]
  - Ketonuria [None]
  - Hyperaesthesia [None]
  - Nephroangiosclerosis [None]
